FAERS Safety Report 5006873-6 (Version None)
Quarter: 2006Q1

REPORT INFORMATION
  Report Type: 
  Country: None (occurrence: None)
  Receive Date: 20060324
  Receipt Date: 20060206
  Transmission Date: 20060701
  Serious: Yes (Congenital Anomaly)
  Sender: FDA-Public Use
  Company Number: 06P-163-0321614-00

PATIENT

DRUGS (4)
  1. DEPAKENE [Suspect]
  2. KALETRA [Suspect]
  3. LAMIVUDINE + ZIDOVUDINE [Suspect]
  4. NELFINAVIR MESILATE [Suspect]

REACTIONS (5)
  - ARNOLD-CHIARI MALFORMATION [None]
  - ATRIAL SEPTAL DEFECT [None]
  - MENINGOCELE [None]
  - PULMONARY ARTERY STENOSIS CONGENITAL [None]
  - VENTRICULAR SEPTAL DEFECT [None]
